FAERS Safety Report 10891738 (Version 2)
Quarter: 2015Q2

REPORT INFORMATION
  Report Type: Spontaneous
  Country: US (occurrence: US)
  Receive Date: 20150306
  Receipt Date: 20150513
  Transmission Date: 20150821
  Serious: Yes (Other)
  Sender: FDA-Public Use
  Company Number: US-ELI_LILLY_AND_COMPANY-US201503001441

PATIENT
  Sex: Male
  Weight: 79.37 kg

DRUGS (4)
  1. ANDROGEL [Suspect]
     Active Substance: TESTOSTERONE
     Indication: BLOOD TESTOSTERONE DECREASED
     Dosage: 1 %, QD
     Route: 062
     Dates: start: 20100728, end: 20120509
  2. ANDROGEL [Suspect]
     Active Substance: TESTOSTERONE
     Dosage: 1.62 %, QD
     Route: 065
     Dates: start: 20140310, end: 20140610
  3. AXIRON [Suspect]
     Active Substance: TESTOSTERONE
     Indication: BLOOD TESTOSTERONE DECREASED
     Dosage: UNK, UNKNOWN
     Route: 061
     Dates: start: 20130830, end: 20131130
  4. ANDROGEL [Suspect]
     Active Substance: TESTOSTERONE
     Dosage: 1.62 %, QD
     Route: 065
     Dates: start: 20120515, end: 20130703

REACTIONS (4)
  - Cerebrovascular accident [Unknown]
  - Lung disorder [Unknown]
  - Venous injury [Unknown]
  - Cardiac disorder [Unknown]
